FAERS Safety Report 19089459 (Version 3)
Quarter: 2022Q4

REPORT INFORMATION
  Report Type: Report from Study
  Country: TZ (occurrence: TZ)
  Receive Date: 20210403
  Receipt Date: 20221104
  Transmission Date: 20230113
  Serious: Yes (Life-Threatening, Other)
  Sender: FDA-Public Use
  Company Number: TZ-CIPLA LTD.-2021TZ02485

PATIENT
  Age: 42 Month
  Sex: Male

DRUGS (4)
  1. LOPINAVIR\RITONAVIR [Suspect]
     Active Substance: LOPINAVIR\RITONAVIR
     Indication: HIV infection WHO clinical stage I
     Dosage: 5 DOSAGE FORM, BID (200MG/50MG BID DAILY)
     Route: 048
     Dates: start: 20180405, end: 20190418
  2. LOPINAVIR\RITONAVIR [Suspect]
     Active Substance: LOPINAVIR\RITONAVIR
     Dosage: 5 DOSAGE FORM, BID (200MG/50MG BID DAILY)
     Route: 048
     Dates: start: 20200305
  3. LAMIVUDINE\ZIDOVUDINE [Suspect]
     Active Substance: LAMIVUDINE\ZIDOVUDINE
     Indication: HIV infection WHO clinical stage I
     Dosage: 2.5 DOSAGE FORM, BID (150MG/75MG BID DAILY)
     Route: 048
     Dates: start: 20180405, end: 20190418
  4. LAMIVUDINE\ZIDOVUDINE [Suspect]
     Active Substance: LAMIVUDINE\ZIDOVUDINE
     Dosage: 2.5 DOSAGE FORM, BID (150MG/75MG BID DAILY)
     Route: 048
     Dates: start: 20200305

REACTIONS (3)
  - Hepatitis [Not Recovered/Not Resolved]
  - Vomiting [Recovered/Resolved]
  - Decreased appetite [Recovered/Resolved]

NARRATIVE: CASE EVENT DATE: 20180406
